FAERS Safety Report 9217681 (Version 4)
Quarter: 2013Q3

REPORT INFORMATION
  Report Type: Spontaneous
  Country: GB (occurrence: GB)
  Receive Date: 20130408
  Receipt Date: 20130701
  Transmission Date: 20140515
  Serious: Yes (Other)
  Sender: FDA-Public Use
  Company Number: GB-BRISTOL-MYERS SQUIBB COMPANY-18759704

PATIENT
  Age: 73 Year
  Sex: 0

DRUGS (3)
  1. SUSTIVA CAPS [Suspect]
     Indication: HIV INFECTION
     Route: 048
  2. ISENTRESS [Suspect]
     Indication: HIV INFECTION
     Dosage: TABS
     Route: 048
     Dates: end: 2013
  3. TRUVADA [Suspect]
     Indication: HIV INFECTION
     Route: 048

REACTIONS (2)
  - Renal failure [Unknown]
  - Insomnia [Recovered/Resolved]
